FAERS Safety Report 20347426 (Version 1)
Quarter: 2022Q1

REPORT INFORMATION
  Report Type: Spontaneous
  Country: US (occurrence: None)
  Receive Date: 20220117
  Receipt Date: 20220117
  Transmission Date: 20220423
  Serious: Yes (Hospitalization)
  Sender: FDA-Public Use
  Company Number: None

PATIENT
  Age: 58 Year
  Sex: Male

DRUGS (5)
  1. CASIRIVIMAB\IMDEVIMAB [Suspect]
     Active Substance: CASIRIVIMAB\IMDEVIMAB
     Indication: COVID-19
     Dosage: FREQUENCY : ONCE;?
     Route: 058
     Dates: start: 20220107, end: 20220107
  2. amLODIPine (NORVASC), 2.5 mg, oral, Daily [Concomitant]
  3. atorvastatin (LIPITOR), 20 mg, oral, Nightly [Concomitant]
  4. losartan-hydrochlorothiazide (HYZAAR) 100-12.5 mg per tablet [Concomitant]
  5. nystatin (MYCOSTATIN)	500,000 Units, oral, 4 times daily [Concomitant]

REACTIONS (13)
  - Acute respiratory failure [None]
  - Alanine aminotransferase increased [None]
  - Aspartate aminotransferase increased [None]
  - Tachycardia [None]
  - Blood chloride decreased [None]
  - Blood sodium decreased [None]
  - Carbon dioxide increased [None]
  - Blood creatinine increased [None]
  - Blood bilirubin increased [None]
  - Lymphopenia [None]
  - Fibrin D dimer increased [None]
  - COVID-19 pneumonia [None]
  - Thyroid mass [None]

NARRATIVE: CASE EVENT DATE: 20220109
